FAERS Safety Report 9318981 (Version 1)
Quarter: 2013Q2

REPORT INFORMATION
  Report Type: Spontaneous
  Country: BR (occurrence: BR)
  Receive Date: 20130530
  Receipt Date: 20130530
  Transmission Date: 20140414
  Serious: Yes (Other)
  Sender: FDA-Public Use
  Company Number: BR-ELI_LILLY_AND_COMPANY-BR201305006881

PATIENT
  Age: 51 Year
  Sex: Male
  Weight: 76 kg

DRUGS (8)
  1. HUMULIN REGULAR [Suspect]
     Indication: TYPE 2 DIABETES MELLITUS
     Dosage: 22 IU, EACH MORNING
     Route: 058
     Dates: start: 2007
  2. HUMULIN REGULAR [Suspect]
     Dosage: 8 IU, QD
     Route: 058
     Dates: start: 2007
  3. HUMULIN REGULAR [Suspect]
     Dosage: 11 IU, EACH EVENING
     Route: 058
     Dates: start: 2007
  4. MAREVAN [Concomitant]
     Dosage: 5 MG, BID
     Route: 065
  5. ENALAPRIL [Concomitant]
     Dosage: 5 MG, BID
     Route: 065
  6. ATENOLOL [Concomitant]
     Dosage: 25 MG, QD
     Route: 065
  7. SINVASTATINA [Concomitant]
     Dosage: 20 MG, QD
     Route: 065
  8. RANITIDINA [Concomitant]
     Dosage: 150 MG, UNKNOWN
     Route: 065

REACTIONS (4)
  - Cardiac disorder [Unknown]
  - Nervousness [Unknown]
  - Blood glucose increased [Recovered/Resolved]
  - Feeling abnormal [Unknown]
